FAERS Safety Report 18331904 (Version 1)
Quarter: 2020Q3

REPORT INFORMATION
  Report Type: Other
  Country: IT (occurrence: IT)
  Receive Date: 20200930
  Receipt Date: 20200930
  Transmission Date: 20201103
  Serious: Yes (Other)
  Sender: FDA-Public Use
  Company Number: IT-VALIDUS PHARMACEUTICALS LLC-IT-2020VAL000789

PATIENT

DRUGS (2)
  1. LASIX [Suspect]
     Active Substance: FUROSEMIDE
     Dosage: UNK (DOSE REDUCED);
     Route: 065
  2. LASIX [Suspect]
     Active Substance: FUROSEMIDE
     Indication: AORTIC STENOSIS
     Dosage: UNK
     Route: 065

REACTIONS (2)
  - Hypotension [Unknown]
  - Drug abuse [Unknown]

NARRATIVE: CASE EVENT DATE: 20200809
